FAERS Safety Report 5649427-0 (Version None)
Quarter: 2008Q1

REPORT INFORMATION
  Report Type: 
  Country: None (occurrence: None)
  Receive Date: 20080304
  Receipt Date: 20080229
  Transmission Date: 20080703
  Serious: Yes (Life-Threatening, Hospitalization, Other)
  Sender: FDA-Public Use
  Company Number: BE-BAYER-200711212GDS

PATIENT
  Age: 62 Year
  Sex: Female
  Weight: 48 kg

DRUGS (27)
  1. SORAFENIB [Suspect]
     Indication: NON-SMALL CELL LUNG CANCER
     Route: 048
     Dates: start: 20070225, end: 20070302
  2. SORAFENIB [Suspect]
     Route: 048
     Dates: start: 20070509, end: 20070609
  3. SORAFENIB [Suspect]
     Route: 048
     Dates: start: 20070307, end: 20070324
  4. SORAFENIB [Suspect]
     Route: 048
     Dates: start: 20070418, end: 20070505
  5. SORAFENIB [Suspect]
     Route: 048
     Dates: start: 20070214, end: 20070223
  6. SORAFENIB [Suspect]
     Route: 048
     Dates: start: 20070224, end: 20070224
  7. SORAFENIB [Suspect]
     Route: 048
     Dates: start: 20070328, end: 20070414
  8. CARBOPLATIN [Suspect]
     Indication: NON-SMALL CELL LUNG CANCER
     Route: 042
     Dates: start: 20070306, end: 20070306
  9. CARBOPLATIN [Suspect]
     Route: 042
     Dates: start: 20070417, end: 20070417
  10. CARBOPLATIN [Suspect]
     Route: 042
     Dates: start: 20070508, end: 20070508
  11. CARBOPLATIN [Suspect]
     Route: 042
     Dates: start: 20070213, end: 20070213
  12. CARBOPLATIN [Suspect]
     Route: 042
     Dates: start: 20070327, end: 20070327
  13. PACLITAXEL [Suspect]
     Indication: NON-SMALL CELL LUNG CANCER
     Route: 042
     Dates: start: 20070213, end: 20070213
  14. PACLITAXEL [Suspect]
     Route: 042
     Dates: start: 20070508, end: 20070508
  15. PACLITAXEL [Suspect]
     Route: 042
     Dates: start: 20070306, end: 20070306
  16. PACLITAXEL [Suspect]
     Route: 042
     Dates: start: 20070417, end: 20070417
  17. PACLITAXEL [Suspect]
     Route: 042
     Dates: start: 20070327, end: 20070327
  18. ELTHYRONE [Concomitant]
     Indication: HYPERTHYROIDISM
     Route: 048
     Dates: start: 19920101
  19. FLUVOXAMINE MALEATE [Concomitant]
     Indication: DEPRESSION
     Route: 048
     Dates: start: 19970101
  20. LORAMET [Concomitant]
     Indication: INSOMNIA
     Route: 048
     Dates: start: 19970101
  21. DAFALGAN CODEINE [Concomitant]
     Indication: CHEST PAIN
     Route: 048
     Dates: start: 20030101
  22. ELTHYRONE [Concomitant]
     Indication: HYPOTHYROIDISM
     Route: 065
  23. BEFACT FORTE [Concomitant]
     Indication: DRUG USE FOR UNKNOWN INDICATION
     Route: 048
  24. MINO 50 [Concomitant]
     Indication: DRUG USE FOR UNKNOWN INDICATION
     Route: 048
  25. RIVOTRIL [Concomitant]
     Indication: DRUG USE FOR UNKNOWN INDICATION
     Route: 048
  26. TRANSTEC [Concomitant]
     Indication: DRUG USE FOR UNKNOWN INDICATION
     Route: 003
  27. IPRACIN SOLUTION [Concomitant]
     Indication: DRUG USE FOR UNKNOWN INDICATION
     Route: 003

REACTIONS (22)
  - ANAEMIA [None]
  - APLASIA [None]
  - BLOOD FIBRINOGEN INCREASED [None]
  - BONE MARROW FAILURE [None]
  - CATHETER RELATED COMPLICATION [None]
  - CONDITION AGGRAVATED [None]
  - CONSTIPATION [None]
  - DIARRHOEA [None]
  - ELECTROLYTE IMBALANCE [None]
  - ENTEROCOCCAL INFECTION [None]
  - FATIGUE [None]
  - FEBRILE NEUTROPENIA [None]
  - FISTULA [None]
  - HYPOCALCAEMIA [None]
  - HYPOKALAEMIA [None]
  - HYPOTHYROIDISM [None]
  - INFLAMMATION [None]
  - LEUKOPENIA [None]
  - PNEUMONIA [None]
  - PYELONEPHRITIS ACUTE [None]
  - RASH [None]
  - THROMBOCYTOPENIA [None]
